FAERS Safety Report 4789489-6 (Version None)
Quarter: 2005Q4

REPORT INFORMATION
  Report Type: 
  Country: None (occurrence: None)
  Receive Date: 20051006
  Receipt Date: 20050929
  Transmission Date: 20060501
  Serious: Yes (Death, Hospitalization)
  Sender: FDA-Public Use
  Company Number: US-JNJFOC-20051000499

PATIENT
  Sex: Female

DRUGS (3)
  1. DURAGESIC-100 [Suspect]
     Indication: CANCER PAIN
     Route: 062
  2. MORPHINE [Concomitant]
     Indication: CANCER PAIN
     Route: 042
  3. CHEMOTHERAPY [Concomitant]

REACTIONS (1)
  - NEOPLASM [None]
